FAERS Safety Report 17843685 (Version 1)
Quarter: 2020Q2

REPORT INFORMATION
  Report Type: Spontaneous
  Country: DE (occurrence: DE)
  Receive Date: 20200531
  Receipt Date: 20200531
  Transmission Date: 20200714
  Serious: Yes (Hospitalization, Other)
  Sender: FDA-Public Use
  Company Number: DE-ASTRAZENECA-2020SE69475

PATIENT
  Age: 74 Year
  Sex: Female
  Weight: 85 kg

DRUGS (3)
  1. SEMAGLUTID [Concomitant]
     Indication: TYPE 2 DIABETES MELLITUS
     Dosage: 0,25 MG/1,5 ML ONCE IN A WEEK
     Route: 065
     Dates: start: 202004
  2. DAPAGLIFLOZIN. [Suspect]
     Active Substance: DAPAGLIFLOZIN
     Indication: TYPE 2 DIABETES MELLITUS
     Route: 048
     Dates: start: 20200414
  3. METFORMIN [Concomitant]
     Active Substance: METFORMIN HYDROCHLORIDE
     Indication: TYPE 2 DIABETES MELLITUS
     Dosage: SINCE SEVERAL YEARS
     Route: 048

REACTIONS (3)
  - Vomiting [Unknown]
  - General physical health deterioration [Unknown]
  - Ketoacidosis [Recovering/Resolving]

NARRATIVE: CASE EVENT DATE: 2020
